FAERS Safety Report 7915078-8 (Version None)
Quarter: 2011Q4

REPORT INFORMATION
  Report Type: 
  Country: None (occurrence: None)
  Receive Date: 20111115
  Receipt Date: 20111104
  Transmission Date: 20120403
  Serious: Yes (Hospitalization)
  Sender: FDA-Public Use
  Company Number: IT-MERCK-1111ITA00014

PATIENT
  Age: 11 Year
  Sex: Male

DRUGS (8)
  1. ALBUTEROL [Concomitant]
     Indication: BRONCHOSPASM
     Route: 055
  2. AZITHROMYCIN [Concomitant]
     Indication: COUGH
     Route: 065
  3. FLUTICASONE [Concomitant]
     Indication: BRONCHOSPASM
     Route: 055
  4. FLUTICASONE [Concomitant]
     Indication: COUGH
     Route: 055
  5. SINGULAIR [Suspect]
     Indication: BRONCHOSPASM
     Route: 048
  6. SINGULAIR [Suspect]
     Indication: COUGH
     Route: 048
  7. AZITHROMYCIN [Concomitant]
     Indication: BRONCHOSPASM
     Route: 065
  8. ALBUTEROL [Concomitant]
     Indication: COUGH
     Route: 055

REACTIONS (2)
  - MALLORY-WEISS SYNDROME [None]
  - EOSINOPHILIA [None]
